FAERS Safety Report 7744859-9 (Version None)
Quarter: 2011Q3

REPORT INFORMATION
  Report Type: 
  Country: None (occurrence: None)
  Receive Date: 20110912
  Receipt Date: 20110902
  Transmission Date: 20111222
  Serious: Yes (Hospitalization, Other)
  Sender: FDA-Public Use
  Company Number: US-MERCK-1105USA03183

PATIENT
  Age: 77 Year
  Sex: Male

DRUGS (29)
  1. ALENDRONATE SODIUM [Suspect]
     Indication: OSTEOPOROSIS
     Route: 048
     Dates: start: 20030101
  2. LOTREL [Concomitant]
     Route: 065
  3. SYNTHROID [Concomitant]
     Route: 065
  4. ACTOS [Concomitant]
     Route: 065
  5. FOLIC ACID [Concomitant]
     Route: 065
  6. MAGNESIUM (UNSPECIFIED) [Concomitant]
     Route: 065
  7. COREG [Concomitant]
     Route: 065
  8. OXYGEN [Concomitant]
     Dosage: 3 LITERS
     Route: 065
  9. ISOSORBIDE MONONITRATE [Concomitant]
     Route: 065
  10. ACETAMINOPHEN AND HYDROCODONE BITARTRATE [Concomitant]
     Route: 065
  11. CORTICOSTEROIDS (UNSPECIFIED) [Concomitant]
     Route: 065
  12. PREVACID [Concomitant]
     Route: 065
  13. HYDROCHLOROTHIAZIDE [Concomitant]
     Route: 048
  14. SIMVASTATIN [Concomitant]
     Route: 048
  15. PLAVIX [Concomitant]
     Route: 065
  16. CARDIZEM CD [Concomitant]
     Route: 065
  17. OMEGA-3 MARINE TRIGLYCERIDES [Concomitant]
     Route: 065
  18. CHONDROITIN SULFATE SODIUM AND GLUCOSAMINE SULFATE [Concomitant]
     Route: 065
  19. FOSAMAX [Suspect]
     Indication: OSTEOPOROSIS
     Route: 048
     Dates: start: 20030101, end: 20090501
  20. LEVOTHYROXINE SODIUM [Concomitant]
     Route: 065
  21. [THERAPY UNSPECIFIED] [Concomitant]
     Indication: BLOOD CHOLESTEROL INCREASED
     Route: 065
  22. OXYBUTYNIN CHLORIDE [Concomitant]
     Route: 065
  23. VICODIN [Concomitant]
     Indication: BACK PAIN
     Route: 065
  24. ZANTAC [Concomitant]
     Indication: GASTRIC DISORDER
     Route: 065
     Dates: start: 19800101
  25. NIACIN [Concomitant]
     Route: 065
  26. LISINOPRIL [Concomitant]
     Route: 048
  27. VITAMINS (UNSPECIFIED) [Concomitant]
     Route: 065
  28. UBIDECARENONE [Concomitant]
     Route: 065
  29. [THERAPY UNSPECIFIED] [Concomitant]
     Indication: HYPERTENSION
     Route: 065

REACTIONS (43)
  - CORONARY ARTERY DISEASE [None]
  - MALAISE [None]
  - SPINAL COLUMN STENOSIS [None]
  - HERPES ZOSTER [None]
  - PERIPHERAL ARTERIAL OCCLUSIVE DISEASE [None]
  - PERIODONTITIS [None]
  - CARDIOVASCULAR DISORDER [None]
  - CHRONIC OBSTRUCTIVE PULMONARY DISEASE [None]
  - HYPOTHYROIDISM [None]
  - INFLUENZA [None]
  - DRUG ADMINISTRATION ERROR [None]
  - LUNG INFECTION [None]
  - CHEST PAIN [None]
  - PNEUMONIA [None]
  - VERTEBRAL FORAMINAL STENOSIS [None]
  - SLEEP APNOEA SYNDROME [None]
  - ARTERIAL OCCLUSIVE DISEASE [None]
  - OSTEONECROSIS OF JAW [None]
  - ANGINA PECTORIS [None]
  - ARRHYTHMIA [None]
  - DIABETES MELLITUS [None]
  - INSOMNIA [None]
  - STOMATITIS [None]
  - MOUTH ULCERATION [None]
  - DIVERTICULUM [None]
  - INTERMITTENT CLAUDICATION [None]
  - GINGIVAL PAIN [None]
  - GASTROOESOPHAGEAL REFLUX DISEASE [None]
  - TOOTH FRACTURE [None]
  - ANXIETY [None]
  - EMPHYSEMA [None]
  - AORTIC DISORDER [None]
  - FLANK PAIN [None]
  - SPERMATOCELE [None]
  - ORAL TORUS [None]
  - INTERVERTEBRAL DISC DEGENERATION [None]
  - NEUROGENIC BLADDER [None]
  - ADVERSE DRUG REACTION [None]
  - DRUG HYPERSENSITIVITY [None]
  - SPONDYLITIS [None]
  - RENAL CYST [None]
  - ORAL INFECTION [None]
  - STAPHYLOCOCCAL INFECTION [None]
